FAERS Safety Report 6782800-6 (Version None)
Quarter: 2010Q2

REPORT INFORMATION
  Report Type: 
  Country: None (occurrence: None)
  Receive Date: 20100616
  Receipt Date: 20100604
  Transmission Date: 20101027
  Serious: Yes (Other)
  Sender: FDA-Public Use
  Company Number: DSA_43226_2010

PATIENT

DRUGS (1)
  1. ENALAPRIL MALEATE [Suspect]
     Indication: DRUG USE FOR UNKNOWN INDICATION
     Dosage: DF (ORAL)
     Route: 048

REACTIONS (1)
  - INTERSTITIAL LUNG DISEASE [None]
